FAERS Safety Report 24398290 (Version 1)
Quarter: 2024Q4

REPORT INFORMATION
  Report Type: Spontaneous
  Country: US (occurrence: US)
  Receive Date: 20241004
  Receipt Date: 20241004
  Transmission Date: 20250114
  Serious: Yes (Other)
  Sender: PFIZER
  Company Number: US-MLMSERVICE-20240920-PI199168-00196-2

PATIENT
  Age: 24 Year
  Sex: Male

DRUGS (2)
  1. LEVETIRACETAM [Suspect]
     Active Substance: LEVETIRACETAM
     Indication: Generalised tonic-clonic seizure
     Dosage: HOME DOSE
  2. LEVETIRACETAM [Suspect]
     Active Substance: LEVETIRACETAM
     Dosage: LOAD OF LEVETIRACETAM (LEV) 1 G IV
     Route: 042

REACTIONS (7)
  - Sedation complication [Unknown]
  - Hyponatraemia [Recovered/Resolved]
  - Treatment noncompliance [Unknown]
  - Polydipsia psychogenic [Unknown]
  - Blood creatine phosphokinase increased [Recovered/Resolved]
  - Blood lactic acid increased [Unknown]
  - Aspartate aminotransferase increased [Recovering/Resolving]
